FAERS Safety Report 9032237 (Version 1)
Quarter: 2013Q1

REPORT INFORMATION
  Report Type: Spontaneous
  Country: US (occurrence: US)
  Receive Date: 20130122
  Receipt Date: 20130122
  Transmission Date: 20140127
  Serious: No
  Sender: FDA-Public Use
  Company Number: US-B.I. PHARMACEUTICALS,INC./RIDGEFIELD-2013-BI-00777BP

PATIENT
  Age: 48 Year
  Sex: Female
  Weight: 79 kg

DRUGS (2)
  1. ZANTAC COOL MINT (TABLETS) [Suspect]
     Indication: DYSPEPSIA
     Route: 048
     Dates: start: 2008
  2. ZANTAC COOL MINT (TABLETS) [Suspect]
     Indication: DYSPEPSIA
     Route: 048

REACTIONS (1)
  - Medication error [Recovered/Resolved]
